FAERS Safety Report 9989382 (Version 3)
Quarter: 2014Q3

REPORT INFORMATION
  Report Type: Spontaneous
  Country: US (occurrence: US)
  Receive Date: 20140310
  Receipt Date: 20140902
  Transmission Date: 20150326
  Serious: Yes (Life-Threatening, Other)
  Sender: FDA-Public Use
  Company Number: US-PFIZER INC-2014062768

PATIENT
  Age: 50 Year
  Sex: Female
  Weight: 73.47 kg

DRUGS (34)
  1. SPIRIVA [Suspect]
     Active Substance: TIOTROPIUM BROMIDE MONOHYDRATE
     Dosage: 18 UG, DAILY
     Route: 055
  2. VANCOMYCIN HCL [Suspect]
     Active Substance: VANCOMYCIN HYDROCHLORIDE
     Indication: INFECTION
     Dosage: 2 G, DAILY
     Route: 042
  3. ROCEPHIN [Suspect]
     Active Substance: CEFTRIAXONE SODIUM
     Indication: INFECTION
     Dosage: 2 G, DAILY
     Route: 042
  4. FLOLAN [Suspect]
     Active Substance: EPOPROSTENOL SODIUM
     Indication: PULMONARY ARTERIAL HYPERTENSION
     Dosage: 49.7 NG/KG/MIN
     Route: 042
     Dates: start: 20060728
  5. LASIX [Concomitant]
     Active Substance: FUROSEMIDE
     Dosage: UNK
  6. FLUCONAZOLE. [Concomitant]
     Active Substance: FLUCONAZOLE
     Dosage: UNK
  7. OXYGEN. [Concomitant]
     Active Substance: OXYGEN
     Dosage: 2 LPM IN AM AND 5 LPM IN PM
  8. CHANTIX [Suspect]
     Active Substance: VARENICLINE TARTRATE
     Indication: EX-TOBACCO USER
     Dosage: UNK
  9. FLOLAN [Suspect]
     Active Substance: EPOPROSTENOL SODIUM
     Dosage: UNK
  10. ALBUTEROL. [Concomitant]
     Active Substance: ALBUTEROL
     Dosage: UNK
  11. BENZONATATE. [Concomitant]
     Active Substance: BENZONATATE
     Dosage: UNK
  12. SPIRONOLACTONE. [Concomitant]
     Active Substance: SPIRONOLACTONE
     Dosage: UNK
  13. WELLBUTRIN [Suspect]
     Active Substance: BUPROPION HYDROCHLORIDE
     Indication: EX-TOBACCO USER
     Dosage: UNK
  14. REQUIP [Concomitant]
     Active Substance: ROPINIROLE HYDROCHLORIDE
     Dosage: UNK
  15. VITAMIN D [Concomitant]
     Active Substance: CHOLECALCIFEROL
     Dosage: UNK
  16. LOPERAMIDE [Concomitant]
     Active Substance: LOPERAMIDE
     Dosage: UNK
  17. REVATIO [Suspect]
     Active Substance: SILDENAFIL CITRATE
     Dosage: UNK
  18. FLOLAN [Suspect]
     Active Substance: EPOPROSTENOL SODIUM
     Dosage: UNK
  19. RESTORIL [Concomitant]
     Active Substance: TEMAZEPAM
     Dosage: UNK
  20. NORCO [Concomitant]
     Active Substance: ACETAMINOPHEN\HYDROCODONE BITARTRATE
     Dosage: UNK
  21. LEXAPRO [Concomitant]
     Active Substance: ESCITALOPRAM OXALATE
     Dosage: UNK
  22. DURAGESIC [Concomitant]
     Active Substance: FENTANYL
     Dosage: UNK
  23. ADVAIR HFA [Suspect]
     Active Substance: FLUTICASONE PROPIONATE\SALMETEROL XINAFOATE
     Dosage: 2 DF, 2X/DAY, (2 PUFFS TWICE PER DAY INHALED)
  24. FLONASE [Suspect]
     Active Substance: FLUTICASONE PROPIONATE
     Dosage: 50 UG, AS NEEDED
     Route: 045
  25. PROVENTIL HFA [Concomitant]
     Active Substance: ALBUTEROL SULFATE
     Dosage: UNK
  26. NEFAZODONE [Concomitant]
     Active Substance: NEFAZODONE
     Dosage: UNK
  27. FERROUS SULFATE [Concomitant]
     Active Substance: FERROUS SULFATE\FERROUS SULFATE, DRIED
     Dosage: UNK
  28. ZYPREXA [Concomitant]
     Active Substance: OLANZAPINE
     Dosage: UNK
  29. HYDROCORTISONE. [Concomitant]
     Active Substance: HYDROCORTISONE
     Dosage: UNK
  30. FLOLAN [Suspect]
     Active Substance: EPOPROSTENOL SODIUM
     Dosage: 46 NG/KG/MIN
  31. OXAZEPAM. [Concomitant]
     Active Substance: OXAZEPAM
     Dosage: UNK
  32. FLOLAN [Suspect]
     Active Substance: EPOPROSTENOL SODIUM
     Dosage: UNK
  33. FLOLAN [Suspect]
     Active Substance: EPOPROSTENOL SODIUM
     Dosage: UNK
  34. KLOR CON [Concomitant]
     Dosage: UNK

REACTIONS (44)
  - Pulmonary arterial hypertension [Unknown]
  - Intervertebral disc protrusion [Not Recovered/Not Resolved]
  - Haemoptysis [Unknown]
  - Volume blood decreased [Unknown]
  - Renal failure [Unknown]
  - Weight decreased [Not Recovered/Not Resolved]
  - Infection [Unknown]
  - Deep vein thrombosis [Unknown]
  - Migraine [Unknown]
  - Orthopnoea [Unknown]
  - Dyspnoea [Not Recovered/Not Resolved]
  - Underdose [Unknown]
  - Pulmonary haemorrhage [Unknown]
  - Gallbladder disorder [Unknown]
  - Hypoxia [Not Recovered/Not Resolved]
  - Spinal cord infection [Unknown]
  - Fatigue [Recovering/Resolving]
  - Depression [Not Recovered/Not Resolved]
  - Device malfunction [Unknown]
  - Supraventricular tachycardia [Recovered/Resolved]
  - Drug intolerance [Unknown]
  - Malaise [Unknown]
  - Adverse drug reaction [Unknown]
  - Plasma cell myeloma [Unknown]
  - Neoplasm malignant [Unknown]
  - Adrenal insufficiency [Not Recovered/Not Resolved]
  - Fibula fracture [Unknown]
  - Haematoma [Unknown]
  - Nausea [Not Recovered/Not Resolved]
  - Pulmonary arterial pressure increased [Unknown]
  - Haemoglobin decreased [Recovered/Resolved]
  - Cough [Unknown]
  - Back pain [Not Recovered/Not Resolved]
  - Overweight [Not Recovered/Not Resolved]
  - Palmar erythema [Unknown]
  - Antiphospholipid antibodies [Unknown]
  - Exercise test abnormal [Unknown]
  - Dermatitis contact [Not Recovered/Not Resolved]
  - Tachyarrhythmia [Unknown]
  - Tobacco abuse [Not Recovered/Not Resolved]
  - Feeling abnormal [Unknown]
  - Chronic obstructive pulmonary disease [Not Recovered/Not Resolved]
  - Hypotension [Recovered/Resolved]
  - Drug ineffective [Unknown]

NARRATIVE: CASE EVENT DATE: 201111
